FAERS Safety Report 9476579 (Version 1)
Quarter: 2013Q3

REPORT INFORMATION
  Report Type: Spontaneous
  Country: US (occurrence: None)
  Receive Date: 20130823
  Receipt Date: 20130823
  Transmission Date: 20140515
  Serious: No
  Sender: FDA-Public Use
  Company Number: None

PATIENT
  Sex: 0

DRUGS (1)
  1. HYLAND^S EARACHE DROPS [Suspect]
     Indication: EAR PAIN
     Dosage: ABOUT 3 DROPS
     Dates: start: 20130818, end: 20130819

REACTIONS (2)
  - Burning sensation [None]
  - Tinnitus [None]
